FAERS Safety Report 18716457 (Version 2)
Quarter: 2021Q1

REPORT INFORMATION
  Report Type: Spontaneous
  Country: US (occurrence: US)
  Receive Date: 20210108
  Receipt Date: 20210203
  Transmission Date: 20210419
  Serious: No
  Sender: FDA-Public Use
  Company Number: US-TOLMAR, INC.-20US024414

PATIENT
  Age: 77 Year
  Sex: Female

DRUGS (4)
  1. ENSTILAR [Suspect]
     Active Substance: BETAMETHASONE DIPROPIONATE\CALCIPOTRIENE HYDRATE
     Indication: SEBORRHOEIC DERMATITIS
     Dosage: UNK, AT BEDTIME
     Route: 061
     Dates: start: 20200921
  2. CALCIPOTRIENE AND BETAMETHASONE DIPROPIONATE 0.005% / 0.064% [Suspect]
     Active Substance: BETAMETHASONE DIPROPIONATE\CALCIPOTRIENE
     Indication: SEBORRHOEIC DERMATITIS
     Dosage: UNK, BEDTIME
     Route: 061
     Dates: start: 202006, end: 202008
  3. CALCIPOTRIENE AND BETAMETHASONE DIPROPIONATE [Suspect]
     Active Substance: BETAMETHASONE DIPROPIONATE\CALCIPOTRIENE
     Indication: SEBORRHOEIC DERMATITIS
     Dosage: UNK
     Route: 065
  4. ENSTILAR [Suspect]
     Active Substance: BETAMETHASONE DIPROPIONATE\CALCIPOTRIENE HYDRATE
     Dosage: UNK, EVERY 8 DAYS AT BEDTIME
     Route: 061
     Dates: start: 202011

REACTIONS (3)
  - Off label use [Unknown]
  - Seborrhoea [Unknown]
  - Skin burning sensation [Unknown]

NARRATIVE: CASE EVENT DATE: 202006
